FAERS Safety Report 6445877-3 (Version None)
Quarter: 2009Q4

REPORT INFORMATION
  Report Type: 
  Country: None (occurrence: None)
  Receive Date: 20091119
  Receipt Date: 20091117
  Transmission Date: 20100525
  Serious: Yes (Hospitalization)
  Sender: FDA-Public Use
  Company Number: DE-TEVA-215446ISR

PATIENT
  Age: 90 Year
  Sex: Female
  Weight: 59 kg

DRUGS (4)
  1. BISOPROLOL FUMARATE AND HYDROCHLOROTHIAZIDE [Suspect]
     Indication: HYPERTENSION
     Dosage: 5MG+12.5MG
     Dates: start: 20070501, end: 20090525
  2. TORASEMIDE [Interacting]
     Indication: HYPERTENSION
     Route: 048
     Dates: start: 20070501, end: 20090525
  3. XIPAMIDE [Interacting]
     Indication: HYPERTENSION
     Route: 048
     Dates: end: 20090525
  4. LISINOPRIL [Interacting]
     Indication: HYPERTENSION
     Route: 048
     Dates: start: 20070501, end: 20090525

REACTIONS (1)
  - RENAL FAILURE ACUTE [None]
